FAERS Safety Report 22258707 (Version 1)
Quarter: 2023Q2

REPORT INFORMATION
  Report Type: Report from Study
  Country: US (occurrence: US)
  Receive Date: 20230427
  Receipt Date: 20230427
  Transmission Date: 20230721
  Serious: Yes (Hospitalization)
  Sender: FDA-Public Use
  Company Number: US-LEO Pharma-351422

PATIENT
  Age: 66 Year
  Sex: Male

DRUGS (2)
  1. ADBRY [Suspect]
     Active Substance: TRALOKINUMAB-LDRM
     Indication: Eczema
     Dosage: DOSAGE : INITIAL DOSE ADMINISTERED ON 15-MAR-2023
     Dates: start: 20230315
  2. DEVICE [Suspect]
     Active Substance: DEVICE
     Indication: Eczema

REACTIONS (2)
  - Bronchitis [Recovering/Resolving]
  - Bronchitis [Recovering/Resolving]

NARRATIVE: CASE EVENT DATE: 20230411
